FAERS Safety Report 4398777-7 (Version None)
Quarter: 2004Q3

REPORT INFORMATION
  Report Type: 
  Country: None (occurrence: None)
  Receive Date: 20040712
  Receipt Date: 20040629
  Transmission Date: 20050211
  Serious: Yes (Death, Hospitalization, Other)
  Sender: FDA-Public Use
  Company Number: 163-20785-04040182

PATIENT
  Age: 73 Year
  Sex: Female

DRUGS (1)
  1. THALOMID [Suspect]
     Indication: MULTIPLE MYELOMA
     Dosage: 100 MG, QHS, ORAL  DISCONTINUES IN 2004
     Route: 048
     Dates: start: 20031009

REACTIONS (3)
  - COLONIC POLYP [None]
  - COLORECTAL CANCER METASTATIC [None]
  - METASTASES TO PERITONEUM [None]
